FAERS Safety Report 5203578-3 (Version None)
Quarter: 2007Q1

REPORT INFORMATION
  Report Type: 
  Country: None (occurrence: None)
  Receive Date: 20070105
  Receipt Date: 20061229
  Transmission Date: 20070707
  Serious: Yes (Other)
  Sender: FDA-Public Use
  Company Number: 2006SP006811

PATIENT
  Age: 12 Year
  Sex: Female

DRUGS (1)
  1. DESLORATADINE [Suspect]
     Indication: DRUG USE FOR UNKNOWN INDICATION
     Dosage: DF;PO
     Route: 048
     Dates: start: 20040101, end: 20060601

REACTIONS (1)
  - RAYNAUD'S PHENOMENON [None]
